FAERS Safety Report 4358232-7 (Version None)
Quarter: 2004Q2

REPORT INFORMATION
  Report Type: 
  Country: None (occurrence: None)
  Receive Date: 20040513
  Receipt Date: 20040513
  Transmission Date: 20050107
  Serious: No
  Sender: FDA-Public Use
  Company Number: None

PATIENT
  Age: 55 Year
  Sex: Male
  Weight: 70 kg

DRUGS (1)
  1. RIBAVIRIN [Suspect]
     Dosage: 400 MG BID ORAL
     Route: 048
     Dates: start: 20040130, end: 20040207

REACTIONS (1)
  - ANAEMIA [None]
